FAERS Safety Report 16931892 (Version 2)
Quarter: 2021Q4

REPORT INFORMATION
  Report Type: Report from Study
  Country: US (occurrence: US)
  Receive Date: 20191017
  Receipt Date: 20211022
  Transmission Date: 20220303
  Serious: Yes (Hospitalization, Other)
  Sender: FDA-Public Use
  Company Number: US-SHIRE-US201933769

PATIENT
  Sex: Male

DRUGS (8)
  1. TEDUGLUTIDE [Suspect]
     Active Substance: TEDUGLUTIDE
     Indication: Product used for unknown indication
     Dosage: 0.3 UNK, 1X/DAY:QD
     Route: 058
     Dates: start: 20181201
  2. TEDUGLUTIDE [Suspect]
     Active Substance: TEDUGLUTIDE
     Indication: Product used for unknown indication
     Dosage: 0.3 UNK, 1X/DAY:QD
     Route: 058
     Dates: start: 20181201
  3. TEDUGLUTIDE [Suspect]
     Active Substance: TEDUGLUTIDE
     Indication: Product used for unknown indication
     Dosage: 0.3 UNK, 1X/DAY:QD
     Route: 058
     Dates: start: 20181201
  4. TEDUGLUTIDE [Suspect]
     Active Substance: TEDUGLUTIDE
     Indication: Product used for unknown indication
     Dosage: 0.3 UNK, 1X/DAY:QD
     Route: 058
     Dates: start: 20181201
  5. TEDUGLUTIDE [Suspect]
     Active Substance: TEDUGLUTIDE
     Dosage: 0.155 UNK, QD
     Route: 065
     Dates: start: 20181201
  6. TEDUGLUTIDE [Suspect]
     Active Substance: TEDUGLUTIDE
     Dosage: 0.155 UNK, QD
     Route: 065
     Dates: start: 20181201
  7. TEDUGLUTIDE [Suspect]
     Active Substance: TEDUGLUTIDE
     Dosage: 0.155 UNK, QD
     Route: 065
     Dates: start: 20181201
  8. TEDUGLUTIDE [Suspect]
     Active Substance: TEDUGLUTIDE
     Dosage: 0.155 UNK, QD
     Route: 065
     Dates: start: 20181201

REACTIONS (1)
  - Obstruction [Unknown]
